FAERS Safety Report 7207282-1 (Version None)
Quarter: 2010Q4

REPORT INFORMATION
  Report Type: 
  Country: None (occurrence: None)
  Receive Date: 20101230
  Receipt Date: 20101230
  Transmission Date: 20110411
  Serious: Yes (Hospitalization)
  Sender: FDA-Public Use
  Company Number: None

PATIENT
  Sex: Male
  Weight: 145.7 kg

DRUGS (7)
  1. BEVACIZUMAB [Suspect]
     Indication: GLIOBLASTOMA MULTIFORME
     Dosage: 10 MG/M2 EVERY 2 WEEKS IV DRIP
     Route: 041
     Dates: start: 20100924, end: 20101220
  2. DEXAMETHASONE [Concomitant]
  3. LAMICTAL [Concomitant]
  4. KEPPRA [Concomitant]
  5. ECONAZOLE NITRATE [Concomitant]
  6. OPIUM TINCTURE [Concomitant]
  7. DIPHENOXYLATE HCL + ATROPINE SULFATE [Concomitant]

REACTIONS (5)
  - ASTHENIA [None]
  - DISEASE PROGRESSION [None]
  - HYPOAESTHESIA [None]
  - OEDEMA [None]
  - RADIATION NECROSIS [None]
